FAERS Safety Report 5187470-9 (Version None)
Quarter: 2006Q4

REPORT INFORMATION
  Report Type: 
  Country: None (occurrence: None)
  Receive Date: 20061220
  Receipt Date: 20060419
  Transmission Date: 20070319
  Serious: No
  Sender: FDA-Public Use
  Company Number: US-AMGEN-US176765

PATIENT
  Sex: Female

DRUGS (10)
  1. ENBREL [Suspect]
     Indication: RHEUMATOID ARTHRITIS
     Route: 065
     Dates: start: 20060301
  2. METHOTREXATE [Concomitant]
     Route: 065
  3. FOLIC ACID [Concomitant]
     Route: 065
  4. NEURONTIN [Concomitant]
     Route: 065
  5. NIASPAN [Concomitant]
     Route: 065
     Dates: start: 20060101
  6. KLONOPIN [Concomitant]
     Route: 065
  7. ARIPIPRAZOLE [Concomitant]
     Route: 065
     Dates: start: 20050101
  8. WELLBUTRIN [Concomitant]
     Route: 065
     Dates: start: 20050101
  9. SEROQUEL [Concomitant]
     Dates: start: 20050101
  10. RANITIDINE [Concomitant]
     Route: 065
     Dates: start: 20050101

REACTIONS (3)
  - GENERALISED ERYTHEMA [None]
  - INJECTION SITE URTICARIA [None]
  - PARAESTHESIA [None]
